FAERS Safety Report 10307906 (Version 22)
Quarter: 2019Q4

REPORT INFORMATION
  Report Type: Report from Study
  Country: CA (occurrence: CA)
  Receive Date: 20140716
  Receipt Date: 20191020
  Transmission Date: 20200122
  Serious: Yes (Death, Other)
  Sender: FDA-Public Use
  Company Number: PHHY2014CA085756

PATIENT
  Sex: Female

DRUGS (15)
  1. JAKAVI [Suspect]
     Active Substance: RUXOLITINIB
     Indication: MYELOFIBROSIS
     Dosage: 15 MG, BID
     Route: 048
     Dates: start: 20130620
  2. JAKAVI [Suspect]
     Active Substance: RUXOLITINIB
     Dosage: 10 MG, BID
     Route: 048
     Dates: start: 20150326, end: 201905
  3. AMLODIPINE SANDOZ//AMLODIPINE BESILATE [Concomitant]
     Indication: PRODUCT USED FOR UNKNOWN INDICATION
     Dosage: 5 MG, QD
     Route: 065
  4. VITAMIN D [Concomitant]
     Active Substance: VITAMIN D NOS
     Indication: PRODUCT USED FOR UNKNOWN INDICATION
     Route: 065
  5. EXJADE [Suspect]
     Active Substance: DEFERASIROX
     Dosage: 1500 MG, QD
     Route: 048
     Dates: start: 20141009, end: 201712
  6. VALACYCLOVIR [Concomitant]
     Active Substance: VALACYCLOVIR HYDROCHLORIDE
     Indication: PRODUCT USED FOR UNKNOWN INDICATION
     Dosage: 500 MG, BID
     Route: 065
  7. SYNTHROID [Concomitant]
     Active Substance: LEVOTHYROXINE SODIUM
     Indication: PRODUCT USED FOR UNKNOWN INDICATION
     Dosage: 50 MG, QD
     Route: 065
  8. EXJADE [Suspect]
     Active Substance: DEFERASIROX
     Indication: IRON OVERLOAD
     Dosage: 1500 MG, QD
     Route: 048
     Dates: start: 20130620
  9. EXJADE [Suspect]
     Active Substance: DEFERASIROX
     Dosage: 1000 MG, BID
     Route: 048
     Dates: start: 201406
  10. JAKAVI [Suspect]
     Active Substance: RUXOLITINIB
     Dosage: 10 MG, BID
     Route: 048
     Dates: start: 201307
  11. ALLOPURINOL. [Concomitant]
     Active Substance: ALLOPURINOL
     Indication: GOUT
     Dosage: 300 MG, QD
     Route: 065
  12. EXJADE [Suspect]
     Active Substance: DEFERASIROX
     Dosage: 1000 MG, QD
     Route: 048
  13. JAKAVI [Suspect]
     Active Substance: RUXOLITINIB
     Dosage: 10 MG, BID
     Route: 048
     Dates: start: 201406
  14. EXJADE [Suspect]
     Active Substance: DEFERASIROX
     Dosage: 1500 MG, QD
     Route: 048
     Dates: start: 201406
  15. SOLYSTAT [Concomitant]
     Indication: BLOOD POTASSIUM INCREASED
     Dosage: 30 G, BIW
     Route: 065

REACTIONS (20)
  - Thrombosis [Unknown]
  - Haemoglobin decreased [Unknown]
  - Muscle spasms [Unknown]
  - White blood cell count decreased [Recovering/Resolving]
  - Splenomegaly [Recovering/Resolving]
  - Platelet count decreased [Recovering/Resolving]
  - Herpes zoster [Unknown]
  - Nausea [Unknown]
  - Pruritus [Recovered/Resolved]
  - Blood pressure increased [Unknown]
  - Nasopharyngitis [Unknown]
  - Blood calcium decreased [Unknown]
  - Epistaxis [Unknown]
  - Death [Fatal]
  - Gastroenteritis viral [Unknown]
  - Blood potassium increased [Recovered/Resolved]
  - Product quality issue [Unknown]
  - Serum ferritin increased [Recovering/Resolving]
  - Urinary tract infection [Unknown]
  - Weight increased [Unknown]

NARRATIVE: CASE EVENT DATE: 2014
